FAERS Safety Report 20501995 (Version 1)
Quarter: 2022Q1

REPORT INFORMATION
  Report Type: Spontaneous
  Country: DK (occurrence: DK)
  Receive Date: 20220222
  Receipt Date: 20220222
  Transmission Date: 20220424
  Serious: Yes (Hospitalization)
  Sender: FDA-Public Use
  Company Number: None

PATIENT
  Age: 76 Year
  Sex: Female
  Weight: 92 kg

DRUGS (5)
  1. METOPROLOL TARTRATE [Suspect]
     Active Substance: METOPROLOL TARTRATE
     Route: 048
     Dates: start: 20191128, end: 20211125
  2. FURIX [Concomitant]
     Route: 065
     Dates: start: 20191223
  3. ATORVASTATIN CALCIUM [Concomitant]
     Active Substance: ATORVASTATIN CALCIUM
     Dosage: STRENGTH: 40 MG
     Route: 048
     Dates: start: 20191116
  4. ACETAMINOPHEN [Concomitant]
     Active Substance: ACETAMINOPHEN
     Dosage: STRENGTH: 500 MG
     Route: 048
     Dates: start: 20191119
  5. HJERTEMAGNYL [Concomitant]
     Route: 048
     Dates: start: 20191130

REACTIONS (9)
  - Weight increased [Not Recovered/Not Resolved]
  - Peripheral swelling [Not Recovered/Not Resolved]
  - Hypotension [Recovered/Resolved]
  - Dizziness [Not Recovered/Not Resolved]
  - Hyperhidrosis [Recovered/Resolved]
  - Sensory disturbance [Not Recovered/Not Resolved]
  - Dyspnoea [Not Recovered/Not Resolved]
  - Heart rate decreased [Recovered/Resolved]
  - Product use in unapproved indication [Unknown]

NARRATIVE: CASE EVENT DATE: 20191201
